FAERS Safety Report 8517847-2 (Version None)
Quarter: 2012Q3

REPORT INFORMATION
  Report Type: 
  Country: None (occurrence: None)
  Receive Date: 20120712
  Receipt Date: 20120712
  Transmission Date: 20120928
  Serious: Yes (Hospitalization)
  Sender: FDA-Public Use
  Company Number: None

PATIENT
  Age: 66 Year
  Sex: Male
  Weight: 96 kg

DRUGS (1)
  1. RIVAROXABAN [Suspect]
     Indication: KNEE ARTHROPLASTY

REACTIONS (2)
  - ECCHYMOSIS [None]
  - PROCEDURAL SITE REACTION [None]
